FAERS Safety Report 13925530 (Version 1)
Quarter: 2017Q3

REPORT INFORMATION
  Report Type: Spontaneous
  Country: US (occurrence: US)
  Receive Date: 20170831
  Receipt Date: 20170831
  Transmission Date: 20171127
  Serious: Yes (Hospitalization)
  Sender: FDA-Public Use
  Company Number: US-SA-2017SA103747

PATIENT
  Sex: Female

DRUGS (2)
  1. SOLOSTAR [Concomitant]
     Active Substance: DEVICE
     Indication: DIABETES MELLITUS
  2. SOLIQUA 100/33 [Suspect]
     Active Substance: INSULIN GLARGINE\LIXISENATIDE
     Indication: DIABETES MELLITUS
     Route: 058

REACTIONS (3)
  - Hypoglycaemia [Unknown]
  - Dehydration [Unknown]
  - Nausea [Unknown]
